FAERS Safety Report 10045635 (Version 2)
Quarter: 2014Q2

REPORT INFORMATION
  Report Type: Other
  Country: JP (occurrence: JP)
  Receive Date: 20140328
  Receipt Date: 20140409
  Transmission Date: 20141212
  Serious: Yes (Other)
  Sender: FDA-Public Use
  Company Number: JP-BRISTOL-MYERS SQUIBB COMPANY-20564209

PATIENT
  Age: 92 Year
  Sex: Female

DRUGS (3)
  1. METGLUCO [Suspect]
     Indication: DIABETES MELLITUS
     Route: 048
  2. GLIMEPIRIDE [Suspect]
     Indication: DIABETES MELLITUS
     Route: 048
  3. SITAGLIPTIN PHOSPHATE [Concomitant]
     Indication: DIABETES MELLITUS
     Route: 048

REACTIONS (3)
  - Hemiplegia [Recovering/Resolving]
  - Hypoglycaemia [Unknown]
  - Decreased appetite [Unknown]
